FAERS Safety Report 24530227 (Version 4)
Quarter: 2024Q4

REPORT INFORMATION
  Report Type: Report from Study
  Country: US (occurrence: US)
  Receive Date: 20241021
  Receipt Date: 20241217
  Transmission Date: 20250115
  Serious: Yes (Hospitalization, Other)
  Sender: MERCK
  Company Number: US-009507513-2409USA008328

PATIENT
  Sex: Female

DRUGS (8)
  1. SOTATERCEPT [Suspect]
     Active Substance: SOTATERCEPT
     Indication: Pulmonary arterial hypertension
     Dosage: 0.4 ML FOR 1 DOSE AND THEN INCREASED TO 1 ML FOR TARGET DOSE, EVERY 3 WEEKS. STRENGTH 45 MG
     Route: 058
     Dates: start: 202408
  2. WINREVAIR [Suspect]
     Active Substance: SOTATERCEPT-CSRK
     Indication: Pulmonary arterial hypertension
     Dosage: 1 MILLILITER, Q3W; STRENGTH: 60 MG
     Route: 058
     Dates: start: 2024
  3. ORENITRAM [Suspect]
     Active Substance: TREPROSTINIL
     Indication: Pulmonary arterial hypertension
     Dosage: 7.375 MILLIGRAM (2 TABLETS OF 1 MG, 1 TABLET OF 5 MG, 1 TABLET OF 0.25 MG AND 1 TABLET OF 0.125 MG)
     Route: 048
     Dates: start: 202409
  4. ORENITRAM [Suspect]
     Active Substance: TREPROSTINIL
     Dosage: 1-5 MILLIGRAM
     Route: 048
  5. ORENITRAM [Suspect]
     Active Substance: TREPROSTINIL
     Dosage: 2-1 MILLIGRAM
     Route: 048
  6. ORENITRAM [Suspect]
     Active Substance: TREPROSTINIL
     Dosage: 1-0.25 MILLIGRAM
     Route: 048
  7. ORENITRAM [Suspect]
     Active Substance: TREPROSTINIL
     Dosage: 1-0.125 MILLIGRAM
     Route: 048
  8. TRAMADOL [Concomitant]
     Active Substance: TRAMADOL

REACTIONS (12)
  - Renal injury [Recovering/Resolving]
  - Hallucination [Recovering/Resolving]
  - Disorganised speech [Recovering/Resolving]
  - Abnormal behaviour [Recovering/Resolving]
  - Epistaxis [Recovering/Resolving]
  - Migraine [Recovering/Resolving]
  - Epistaxis [Recovered/Resolved]
  - Blood pressure decreased [Recovering/Resolving]
  - Weight decreased [Unknown]
  - Injection site pain [Recovering/Resolving]
  - Dyspnoea [Unknown]
  - Inappropriate schedule of product administration [Unknown]

NARRATIVE: CASE EVENT DATE: 20240101
